FAERS Safety Report 25354352 (Version 1)
Quarter: 2025Q2

REPORT INFORMATION
  Report Type: Spontaneous
  Country: US (occurrence: US)
  Receive Date: 20250523
  Receipt Date: 20250523
  Transmission Date: 20250717
  Serious: No
  Sender: GLAUKOS
  Company Number: US-GLK-000637

PATIENT
  Sex: Female

DRUGS (1)
  1. PHOTREXA VISCOUS [Suspect]
     Active Substance: RIBOFLAVIN 5^-PHOSPHATE SODIUM
     Route: 047

REACTIONS (4)
  - Eye ulcer [Unknown]
  - Corneal infiltrates [Unknown]
  - Thermal burns of eye [Unknown]
  - Eye infection [Unknown]
